FAERS Safety Report 4433277-7 (Version None)
Quarter: 2004Q3

REPORT INFORMATION
  Report Type: 
  Country: None (occurrence: None)
  Receive Date: 20040824
  Receipt Date: 20040816
  Transmission Date: 20050211
  Serious: Yes (Hospitalization)
  Sender: FDA-Public Use
  Company Number: RENA-11012

PATIENT
  Sex: Male
  Weight: 100 kg

DRUGS (2)
  1. RENAGEL [Suspect]
     Indication: HYPERPHOSPHATAEMIA
     Dosage: 12 G TID PO
     Route: 048
  2. PHOSLO [Concomitant]

REACTIONS (1)
  - PANCREATITIS [None]
